FAERS Safety Report 19982776 (Version 1)
Quarter: 2021Q4

REPORT INFORMATION
  Report Type: Spontaneous
  Country: ES (occurrence: ES)
  Receive Date: 20211021
  Receipt Date: 20211021
  Transmission Date: 20220303
  Serious: Yes (Death, Hospitalization, Other)
  Sender: FDA-Public Use
  Company Number: ES-LUPIN PHARMACEUTICALS INC.-2021-20078

PATIENT
  Age: 47 Year
  Sex: Female

DRUGS (10)
  1. DECITABINE [Suspect]
     Active Substance: DECITABINE
     Indication: Acute myeloid leukaemia
     Dosage: 20 MILLIGRAM/SQ. METER; (DAYS 1-5 OF EACH 28-DAY CYCLE)
     Route: 065
     Dates: start: 2019
  2. DECITABINE [Suspect]
     Active Substance: DECITABINE
     Indication: Leukaemia recurrent
  3. VENETOCLAX [Suspect]
     Active Substance: VENETOCLAX
     Indication: Acute myeloid leukaemia
     Dosage: 100 MILLIGRAM, QD (REPORTED AS, 100 MG DAILY TO A MAXIMUM DOSE OF 400 MG)
     Route: 065
     Dates: start: 2019
  4. VENETOCLAX [Suspect]
     Active Substance: VENETOCLAX
     Indication: Leukaemia recurrent
     Dosage: 400 MILLIGRAM (UP TITRATED FROM 100 MG DAILY TO A MAXIMUM DOSE OF 400 MG)
     Route: 065
  5. VENETOCLAX [Suspect]
     Active Substance: VENETOCLAX
     Dosage: 70 MILLIGRAM (REDUCED DOSE)
     Route: 065
  6. TACROLIMUS [Concomitant]
     Active Substance: TACROLIMUS
     Indication: Prophylaxis against graft versus host disease
     Dosage: UNK
     Route: 065
  7. RAPAMYCIN [Concomitant]
     Active Substance: SIROLIMUS
     Indication: Prophylaxis against graft versus host disease
     Dosage: UNK
     Route: 065
  8. AZACITIDINE [Concomitant]
     Active Substance: AZACITIDINE
     Indication: Acute myeloid leukaemia
     Dosage: 75 MILLIGRAM/SQ. METER; (DAYS 1-7 OF EACH 28-DAY CYCLE)
     Route: 065
  9. AZACITIDINE [Concomitant]
     Active Substance: AZACITIDINE
     Indication: Leukaemia recurrent
  10. POSACONAZOLE [Concomitant]
     Active Substance: POSACONAZOLE
     Indication: Antifungal prophylaxis
     Dosage: UNK
     Route: 065

REACTIONS (8)
  - Pneumonia [Fatal]
  - Pneumonia klebsiella [Fatal]
  - Septic shock [Fatal]
  - Febrile neutropenia [Unknown]
  - Myelosuppression [Unknown]
  - Escherichia bacteraemia [Unknown]
  - Splenic abscess [Unknown]
  - Systemic candida [Unknown]
